FAERS Safety Report 6208070-5 (Version None)
Quarter: 2009Q2

REPORT INFORMATION
  Report Type: 
  Country: None (occurrence: None)
  Receive Date: 20090529
  Receipt Date: 20090408
  Transmission Date: 20091009
  Serious: No
  Sender: FDA-Public Use
  Company Number: US-KINGPHARMUSA00001-K200900405

PATIENT
  Sex: Male
  Weight: 81.633 kg

DRUGS (3)
  1. FLECTOR [Suspect]
     Indication: BACK PAIN
     Dosage: 1 PATCH, BID
     Route: 061
     Dates: start: 20090326, end: 20090401
  2. FLECTOR [Suspect]
     Dosage: 1 PATCH, BID
     Route: 061
     Dates: start: 20090326
  3. FLECTOR [Suspect]
     Dosage: 1 PATCH, BID
     Route: 061
     Dates: start: 20090326, end: 20090401

REACTIONS (1)
  - DRUG INEFFECTIVE [None]
